FAERS Safety Report 9414863 (Version 1)
Quarter: 2013Q3

REPORT INFORMATION
  Report Type: Spontaneous
  Country: US (occurrence: US)
  Receive Date: 20130723
  Receipt Date: 20130723
  Transmission Date: 20140515
  Serious: No
  Sender: FDA-Public Use
  Company Number: US-TEVA-420776USA

PATIENT
  Age: 33 Year
  Sex: Female
  Weight: 59.93 kg

DRUGS (2)
  1. PLAN B ONE-STEP [Suspect]
     Indication: POST COITAL CONTRACEPTION
     Dosage: 1.5 MILLIGRAM DAILY;
     Route: 048
     Dates: start: 20130606, end: 20130606
  2. LEVOTHYROXINE [Concomitant]
     Indication: HYPOTHYROIDISM

REACTIONS (5)
  - Nasopharyngitis [Recovered/Resolved]
  - Abdominal distension [Not Recovered/Not Resolved]
  - Feeling hot [Recovered/Resolved]
  - Menstruation irregular [Unknown]
  - Breast tenderness [Recovered/Resolved]
